FAERS Safety Report 22593687 (Version 1)
Quarter: 2023Q2

REPORT INFORMATION
  Report Type: Spontaneous
  Country: ES (occurrence: ES)
  Receive Date: 20230613
  Receipt Date: 20230613
  Transmission Date: 20230721
  Serious: Yes (Other)
  Sender: FDA-Public Use
  Company Number: None

PATIENT
  Age: 45 Year
  Sex: Female

DRUGS (6)
  1. IMRALDI [Suspect]
     Active Substance: ADALIMUMAB
     Indication: Hidradenitis
     Dosage: IMRALDI 40 MG SOLUTION FOR INJECTION IN PREFILLED PEN, 2 PENS OR 0.4 ML
     Route: 058
     Dates: start: 20230413
  2. IMRALDI [Suspect]
     Active Substance: ADALIMUMAB
     Dosage: IMRALDI 40 MG SOLUTION FOR INJECTION IN PREFILLED SYRINGE, 2 PRE-FILLED SYRINGES OF 0.8 ML
     Route: 058
     Dates: start: 20221124, end: 20230412
  3. CLINDAMYCIN HYDROCHLORIDE [Concomitant]
     Active Substance: CLINDAMYCIN HYDROCHLORIDE
     Indication: Product used for unknown indication
     Dosage: DALACIN 300 MG HARD CAPSULES, 24 CAPSULES
     Route: 048
     Dates: start: 20230216
  4. DULOXETINE [Concomitant]
     Active Substance: DULOXETINE
     Indication: Product used for unknown indication
     Dosage: DULOTEX 90 MG GASTRORESISTANT HARD CAPSULES, 28 CAPSULES (PVCIPEIPVDC/ALBLISTER)
     Route: 048
     Dates: start: 20221130
  5. MIRTAZAPINA NORMON [Concomitant]
     Indication: Product used for unknown indication
     Dosage: MIRTA2APINE NORMON 15MG FILM-COATED TABLETS EFG, 30 TABLETS
     Route: 048
     Dates: start: 20220701
  6. LORAZEPAM [Concomitant]
     Active Substance: LORAZEPAM
     Indication: Product used for unknown indication
     Dosage: LORAZEPAM NORMON 1 MG TABLETS EFG, 50 TABLETS
     Route: 048
     Dates: start: 20220916

REACTIONS (2)
  - Fall [Recovered/Resolved]
  - Dizziness [Not Recovered/Not Resolved]

NARRATIVE: CASE EVENT DATE: 20230415
